FAERS Safety Report 13362855 (Version 1)
Quarter: 2017Q1

REPORT INFORMATION
  Report Type: Spontaneous
  Country: US (occurrence: US)
  Receive Date: 20170322
  Receipt Date: 20170322
  Transmission Date: 20170429
  Serious: Yes (Other)
  Sender: FDA-Public Use
  Company Number: None

PATIENT
  Age: 50 Year
  Sex: Female
  Weight: 60.75 kg

DRUGS (4)
  1. IMMITREX [Concomitant]
  2. BUTABITOL [Concomitant]
  3. BOTOX [Suspect]
     Active Substance: ONABOTULINUMTOXINA
     Indication: MIGRAINE
     Dosage: OTHER STRENGTH:UNIT;QUANTITY:160 UNIT;OTHER FREQUENCY:ONE TIME;?
     Route: 058
     Dates: start: 20170215, end: 20170215
  4. MULTIVITAMINS [Concomitant]
     Active Substance: VITAMINS

REACTIONS (14)
  - Dizziness [None]
  - Muscular weakness [None]
  - Nausea [None]
  - Eyelid oedema [None]
  - Eyelid disorder [None]
  - Hypertension [None]
  - Vision blurred [None]
  - Feeling cold [None]
  - Neck pain [None]
  - Tension headache [None]
  - Pain [None]
  - Drug effect incomplete [None]
  - Swelling face [None]
  - Musculoskeletal stiffness [None]

NARRATIVE: CASE EVENT DATE: 20170215
